FAERS Safety Report 8000947-3 (Version None)
Quarter: 2011Q4

REPORT INFORMATION
  Report Type: 
  Country: None (occurrence: None)
  Receive Date: 20111222
  Receipt Date: 20111213
  Transmission Date: 20120403
  Serious: Yes (Hospitalization)
  Sender: FDA-Public Use
  Company Number: US-BAYER-2011-040014

PATIENT
  Age: 37 Year
  Sex: Female
  Weight: 60.771 kg

DRUGS (7)
  1. AMPICILLIN TRIHYDRATE [Concomitant]
     Dosage: 500 MG, UNK
     Dates: start: 20070330, end: 20090327
  2. YAZ [Suspect]
     Indication: CONTRACEPTION
     Dosage: UNK
     Dates: start: 20070401, end: 20090501
  3. YAZ [Suspect]
     Indication: ACNE
  4. NSAID'S [Concomitant]
     Dosage: UNK UNK, PRN
  5. PROMETHAZINE [Concomitant]
     Dosage: 25 MG, UNK
     Dates: start: 20090501
  6. OXYCODONE HCL AND ACETAMINOPHEN [Concomitant]
     Dosage: UNK
     Dates: start: 20090430
  7. MIGRAINE MEDICATION [Concomitant]

REACTIONS (5)
  - PULMONARY EMBOLISM [None]
  - EMOTIONAL DISTRESS [None]
  - PAIN [None]
  - INJURY [None]
  - ANXIETY [None]
